FAERS Safety Report 13532206 (Version 1)
Quarter: 2017Q2

REPORT INFORMATION
  Report Type: Spontaneous
  Country: CA (occurrence: CA)
  Receive Date: 20170510
  Receipt Date: 20170510
  Transmission Date: 20170830
  Serious: Yes (Other)
  Sender: FDA-Public Use
  Company Number: CA-SUNOVION-2017SUN001977

PATIENT
  Age: 27 Year
  Sex: Male
  Weight: 88 kg

DRUGS (11)
  1. DOCUSATE SODIUM. [Suspect]
     Active Substance: DOCUSATE SODIUM
  2. LORAZEPAM. [Concomitant]
     Active Substance: LORAZEPAM
  3. SANDOZ AMLODIPINE [Suspect]
     Active Substance: AMLODIPINE MALEATE
  4. LAMOTRIGINE. [Concomitant]
     Active Substance: LAMOTRIGINE
  5. SERTRALINE [Concomitant]
     Active Substance: SERTRALINE HYDROCHLORIDE
  6. MAGNESIUM HYDROXIDE. [Suspect]
     Active Substance: MAGNESIUM HYDROXIDE
  7. CLOZAPINE. [Concomitant]
     Active Substance: CLOZAPINE
  8. VALPROIC ACID. [Concomitant]
     Active Substance: VALPROIC ACID
  9. HALOPERIDOL. [Concomitant]
     Active Substance: HALOPERIDOL
  10. LATUDA [Suspect]
     Active Substance: LURASIDONE HYDROCHLORIDE
     Indication: BIPOLAR I DISORDER
     Dosage: 80 MG, QD
     Route: 048
  11. LITHIUM. [Concomitant]
     Active Substance: LITHIUM

REACTIONS (1)
  - Eosinophilia [Recovering/Resolving]
